FAERS Safety Report 7058572 (Version 3)
Quarter: 2014Q3

REPORT INFORMATION
  Report Type: Spontaneous
  Country: US (occurrence: None)
  Receive Date: 20090708
  Receipt Date: 20140926
  Transmission Date: 20150326
  Serious: Yes (Death, Hospitalization, Other)
  Sender: FDA-Public Use
  Company Number: 2009S1005291

PATIENT
  Age: 81 Year
  Sex: Female

DRUGS (9)
  1. ASPIRIN (ACETYLSALICYCLIC ACID) [Concomitant]
     Active Substance: ASPIRIN
  2. FOSAMAX [Concomitant]
     Active Substance: ALENDRONATE SODIUM
  3. RANITIDINE [Concomitant]
     Active Substance: RANITIDINE\RANITIDINE HYDROCHLORIDE
  4. PHOSPHO-SODA [Suspect]
     Active Substance: SODIUM PHOSPHATE, DIBASIC\SODIUM PHOSPHATE, MONOBASIC
     Indication: COLONOSCOPY
     Dosage: ;PO
     Route: 048
     Dates: start: 20040111, end: 20040112
  5. SYNTHROID [Concomitant]
     Active Substance: LEVOTHYROXINE SODIUM
  6. MAXZIDE (HYDROCHLOROTHIAZIDE, TRIAMTERENE) [Concomitant]
  7. FLEET [Concomitant]
     Active Substance: BISACODYL\GLYCERIN\MINERAL OIL\SODIUM PHOSPHATE, DIBASIC\SODIUM PHOSPHATE, MONOBASIC
     Indication: COLONOSCOPY
     Route: 054
  8. PRAVACHOL (PRAVASTATIN SODIUM) [Concomitant]
  9. AMITRIPTYLINE [Concomitant]
     Active Substance: AMITRIPTYLINE

REACTIONS (16)
  - Dialysis [None]
  - Renal failure chronic [None]
  - Abdominal pain [None]
  - Anaemia [None]
  - Glomerulosclerosis [None]
  - Metabolic acidosis [None]
  - Hypophagia [None]
  - Decreased appetite [None]
  - Nephrogenic anaemia [None]
  - Renal failure acute [None]
  - Urinary tract infection [None]
  - Tubulointerstitial nephritis [None]
  - Renal injury [None]
  - Asthenia [None]
  - Hyperparathyroidism [None]
  - Perinephric collection [None]

NARRATIVE: CASE EVENT DATE: 2004
